FAERS Safety Report 5490363-0 (Version None)
Quarter: 2007Q4

REPORT INFORMATION
  Report Type: 
  Country: None (occurrence: None)
  Receive Date: 20071015
  Receipt Date: 20070706
  Transmission Date: 20080405
  Serious: Yes (Other)
  Sender: FDA-Public Use
  Company Number: PHEH2007US09565

PATIENT
  Age: 96 Year
  Sex: Female

DRUGS (1)
  1. MIACALCIN [Suspect]
     Dosage: 4 DOSES, INTRANASAL
     Route: 050
     Dates: end: 20070702

REACTIONS (3)
  - ABDOMINAL PAIN [None]
  - DEAFNESS [None]
  - HEADACHE [None]
